FAERS Safety Report 5494038-3 (Version None)
Quarter: 2007Q4

REPORT INFORMATION
  Report Type: 
  Country: None (occurrence: None)
  Receive Date: 20071023
  Receipt Date: 20071011
  Transmission Date: 20080405
  Serious: Yes (Other)
  Sender: FDA-Public Use
  Company Number: GB-PFIZER INC-2007085682

PATIENT
  Age: 63 Year
  Sex: Female

DRUGS (6)
  1. CHAMPIX [Suspect]
     Indication: SMOKING CESSATION THERAPY
     Route: 048
     Dates: start: 20070730, end: 20070815
  2. BENDROFLUAZIDE [Concomitant]
     Route: 048
  3. CANDESARTAN CILEXETIL [Concomitant]
     Route: 048
  4. PERINDOPRIL ERBUMINE [Concomitant]
     Route: 048
  5. TEMAZEPAM [Concomitant]
     Route: 048
  6. TRAMADOL HCL [Concomitant]
     Route: 048

REACTIONS (4)
  - BALLISMUS [None]
  - DIARRHOEA [None]
  - NAUSEA [None]
  - NERVOUSNESS [None]
